FAERS Safety Report 6909294-1 (Version None)
Quarter: 2010Q3

REPORT INFORMATION
  Report Type: 
  Country: None (occurrence: None)
  Receive Date: 20100805
  Receipt Date: 20100723
  Transmission Date: 20110219
  Serious: Yes (Hospitalization, Other)
  Sender: FDA-Public Use
  Company Number: PHHY2010US34985

PATIENT
  Sex: Male

DRUGS (5)
  1. GLEEVEC [Suspect]
     Indication: CHRONIC MYELOID LEUKAEMIA
     Dosage: 200 MG, BID
     Route: 048
     Dates: start: 20030101, end: 20100706
  2. XANAX [Concomitant]
     Indication: ANXIETY
  3. ATIVAN [Concomitant]
     Indication: ANXIETY
  4. FUROSEMIDE [Concomitant]
  5. ACE INHIBITOR NOS [Concomitant]

REACTIONS (8)
  - ARTHRALGIA [None]
  - BILE DUCT OBSTRUCTION [None]
  - BILE DUCT STENT INSERTION [None]
  - HEPATOBILIARY DISEASE [None]
  - JAUNDICE [None]
  - NEOPLASM MALIGNANT [None]
  - PANCREATIC CARCINOMA METASTATIC [None]
  - YELLOW SKIN [None]
